FAERS Safety Report 4339284-7 (Version None)
Quarter: 2004Q2

REPORT INFORMATION
  Report Type: 
  Country: None (occurrence: None)
  Receive Date: 20040415
  Receipt Date: 20040409
  Transmission Date: 20050107
  Serious: Yes (Other)
  Sender: FDA-Public Use
  Company Number: US-BRISTOL-MYERS SQUIBB COMPANY-12557161

PATIENT
  Age: 21 Year
  Sex: Female

DRUGS (3)
  1. SUSTIVA [Suspect]
     Route: 048
     Dates: start: 20030801, end: 20031014
  2. COMBIVIR [Suspect]
     Dosage: WITHHELD FROM 14-OCT-2003 TO 21-OCT-2003
     Route: 048
     Dates: start: 20030801
  3. NEVIRAPINE [Suspect]
     Dosage: DAILY DOSE INCREASED TO 400 MG ON 01-NOV-2003
     Route: 048
     Dates: start: 20031021

REACTIONS (3)
  - COMPLICATIONS OF MATERNAL EXPOSURE TO THERAPEUTIC DRUGS [None]
  - PREGNANCY [None]
  - STILLBIRTH [None]
